FAERS Safety Report 26117119 (Version 1)
Quarter: 2025Q4

REPORT INFORMATION
  Report Type: Spontaneous
  Country: US (occurrence: US)
  Receive Date: 20251203
  Receipt Date: 20251203
  Transmission Date: 20260117
  Serious: Yes (Other)
  Sender: INCYTE
  Company Number: US-INCYTE CORPORATION-2025IN013162

PATIENT
  Age: 73 Year

DRUGS (2)
  1. JAKAFI [Suspect]
     Active Substance: RUXOLITINIB
     Indication: Angioimmunoblastic T-cell lymphoma
     Dosage: 5 MILLIGRAM, BID
  2. COPIKTRA [Concomitant]
     Active Substance: DUVELISIB
     Indication: Product used for unknown indication
     Dosage: UNK
     Route: 065

REACTIONS (7)
  - Platelet count decreased [Unknown]
  - Haemoglobin decreased [Unknown]
  - Red blood cell count decreased [Unknown]
  - Abdominal pain upper [Unknown]
  - Irritable bowel syndrome [Unknown]
  - Fatigue [Unknown]
  - Off label use [Unknown]
